FAERS Safety Report 4306763-8 (Version None)
Quarter: 2004Q1

REPORT INFORMATION
  Report Type: 
  Country: None (occurrence: None)
  Receive Date: 20040227
  Receipt Date: 20040217
  Transmission Date: 20041129
  Serious: Yes (Hospitalization)
  Sender: FDA-Public Use
  Company Number: 200410661FR

PATIENT
  Age: 49 Year
  Sex: Female
  Weight: 49 kg

DRUGS (6)
  1. RIFINAH [Suspect]
     Indication: PULMONARY TUBERCULOSIS
     Dosage: FREQUENCY: IRREGULAR
     Route: 048
     Dates: start: 20030917, end: 20030920
  2. RIFATER [Suspect]
     Indication: PULMONARY TUBERCULOSIS
     Dosage: DOSE UNIT: UNITS
     Route: 048
     Dates: start: 20030101, end: 20030917
  3. LEXOMIL [Concomitant]
     Route: 048
  4. SMECTA [Concomitant]
     Route: 048
  5. DEXAMBUTOL [Concomitant]
     Indication: TUBERCULOSIS
     Route: 048
     Dates: start: 20030717, end: 20030917
  6. MOBIC [Concomitant]
     Route: 048

REACTIONS (2)
  - ARTHRALGIA [None]
  - DIARRHOEA [None]
